FAERS Safety Report 24177647 (Version 1)
Quarter: 2024Q3

REPORT INFORMATION
  Report Type: Spontaneous
  Country: IN (occurrence: IN)
  Receive Date: 20240806
  Receipt Date: 20240806
  Transmission Date: 20241017
  Serious: Yes (Life-Threatening, Hospitalization, Other)
  Sender: EPIC PHARM
  Company Number: IN-EPICPHARMA-IN-2024EPCLIT00920

PATIENT
  Age: 16 Year
  Sex: Male

DRUGS (5)
  1. RIFAMPIN [Suspect]
     Active Substance: RIFAMPIN
     Indication: Tuberculous pleurisy
     Route: 065
  2. LABETALOL HYDROCHLORIDE [Suspect]
     Active Substance: LABETALOL\LABETALOL HYDROCHLORIDE
     Indication: Hypertension
     Dosage: 1 MG/MIN AND TITRATED TO RESPONSE
     Route: 065
  3. ISONIAZID [Concomitant]
     Active Substance: ISONIAZID
     Route: 065
  4. PYRAZINAMIDE [Concomitant]
     Active Substance: PYRAZINAMIDE
     Route: 065
  5. ETHAMBUTOL [Concomitant]
     Active Substance: ETHAMBUTOL HYDROCHLORIDE
     Route: 065

REACTIONS (4)
  - Posterior reversible encephalopathy syndrome [Unknown]
  - Accelerated hypertension [Recovered/Resolved]
  - Therapeutic product effect decreased [Unknown]
  - Drug interaction [Unknown]
